FAERS Safety Report 7716344-1 (Version None)
Quarter: 2011Q3

REPORT INFORMATION
  Report Type: 
  Country: None (occurrence: None)
  Receive Date: 20110829
  Receipt Date: 20110818
  Transmission Date: 20111222
  Serious: Yes (Hospitalization, Other)
  Sender: FDA-Public Use
  Company Number: PHHY2011US14485

PATIENT
  Sex: Female
  Weight: 94.331 kg

DRUGS (11)
  1. CYMBALTA [Concomitant]
     Dosage: 60 MG, DAILY
  2. LISINOPRIL [Concomitant]
     Indication: HYPERTENSION
     Dosage: 20/12.5 MG DAILY
  3. ASPIRIN [Concomitant]
     Dosage: 32 MG, DAILY
  4. APIDRA [Concomitant]
     Dosage: UNK UKN, UNK
  5. MULTI-VITAMINS [Concomitant]
     Dosage: UNK UKN, UNK
  6. GILENYA [Suspect]
     Indication: RELAPSING-REMITTING MULTIPLE SCLEROSIS
     Dosage: 0.5 MG, QD
     Route: 048
     Dates: start: 20110215
  7. LIPITOR [Concomitant]
     Indication: HYPERLIPIDAEMIA
     Dosage: 80 MG, DAILY
  8. ZETIA [Concomitant]
     Dosage: 10 MG, DAILY
  9. INSULIN [Concomitant]
     Dosage: UNK UKN, UNK
  10. NEXIUM [Concomitant]
     Indication: ABDOMINAL DISCOMFORT
     Dosage: 40 MG, BID
  11. SYNTHROID [Concomitant]
     Dosage: 150 MG, DAILY

REACTIONS (11)
  - ARTHRALGIA [None]
  - CHEST DISCOMFORT [None]
  - FEELING ABNORMAL [None]
  - HEADACHE [None]
  - ELECTROCARDIOGRAM QT PROLONGED [None]
  - QRS AXIS ABNORMAL [None]
  - ATRIOVENTRICULAR BLOCK FIRST DEGREE [None]
  - PAIN IN EXTREMITY [None]
  - MUSCULAR WEAKNESS [None]
  - CARDIOMYOPATHY [None]
  - SENSORY DISTURBANCE [None]
